FAERS Safety Report 9838044 (Version 1)
Quarter: 2014Q1

REPORT INFORMATION
  Report Type: Spontaneous
  Country: BR (occurrence: BR)
  Receive Date: 20140123
  Receipt Date: 20140123
  Transmission Date: 20141002
  Serious: Yes (Other)
  Sender: FDA-Public Use
  Company Number: BR-PFIZER INC-2014019317

PATIENT
  Age: 60 Year
  Sex: Female
  Weight: 68 kg

DRUGS (1)
  1. LIPITOR [Suspect]
     Indication: ATHEROSCLEROSIS PROPHYLAXIS
     Dosage: 20 MG DAILY
     Route: 048
     Dates: start: 20080120

REACTIONS (1)
  - Renal disorder [Unknown]
